FAERS Safety Report 6159176-0 (Version None)
Quarter: 2009Q2

REPORT INFORMATION
  Report Type: 
  Country: None (occurrence: None)
  Receive Date: 20090414
  Receipt Date: 20090401
  Transmission Date: 20091009
  Serious: Yes (Hospitalization)
  Sender: FDA-Public Use
  Company Number: TCI2009A00835

PATIENT
  Age: 68 Year
  Sex: Male

DRUGS (1)
  1. ACTOS [Suspect]
     Indication: TYPE 2 DIABETES MELLITUS
     Dosage: 15MG(15MG) PER ORAL
     Route: 048
     Dates: start: 20080206, end: 20090125

REACTIONS (2)
  - CEREBRAL INFARCTION [None]
  - FALL [None]
